FAERS Safety Report 13057949 (Version 1)
Quarter: 2016Q4

REPORT INFORMATION
  Report Type: Other
  Country: GB (occurrence: GB)
  Receive Date: 20161223
  Receipt Date: 20161223
  Transmission Date: 20170207
  Serious: Yes (Hospitalization)
  Sender: FDA-Public Use
  Company Number: GB-VELOXIS PHARMACEUTICALS-1061222

PATIENT
  Age: 61 Year
  Sex: Male

DRUGS (4)
  1. MYCOPHENOLATE MOFETIL. [Suspect]
     Active Substance: MYCOPHENOLATE MOFETIL
  2. PREDNISOLONE. [Suspect]
     Active Substance: PREDNISOLONE
  3. BASILIXIMAB [Suspect]
     Active Substance: BASILIXIMAB
  4. ENVARSUS XR [Suspect]
     Active Substance: TACROLIMUS
     Indication: RENAL TRANSPLANT

REACTIONS (1)
  - Varicella [Recovered/Resolved]
